FAERS Safety Report 6923457-0 (Version None)
Quarter: 2010Q3

REPORT INFORMATION
  Report Type: 
  Country: None (occurrence: None)
  Receive Date: 20100813
  Receipt Date: 20100809
  Transmission Date: 20110219
  Serious: Yes (Hospitalization, Other)
  Sender: FDA-Public Use
  Company Number: US-BAYER-201023246NA

PATIENT
  Age: 44 Year
  Sex: Female
  Weight: 79 kg

DRUGS (10)
  1. YAZ [Suspect]
     Indication: PREMENSTRUAL SYNDROME
     Route: 048
     Dates: start: 20070701, end: 20080701
  2. SEROQUEL [Concomitant]
  3. EFFEXOR XR [Concomitant]
  4. CALCIUM WITH VITAMIN D [Concomitant]
  5. IRON SULFATETHIAMIN COMPOUND TAB [Concomitant]
     Dosage: TOTAL DAILY DOSE: 650 MG  UNIT DOSE: 325 MG
  6. MULTIPLE VITAMIN [Concomitant]
  7. HYDROCELE [Concomitant]
  8. TRIAMCINOLONE [Concomitant]
  9. ASPIRINE [Concomitant]
  10. IMITREX [Concomitant]

REACTIONS (8)
  - BIPOLAR DISORDER [None]
  - DEEP VEIN THROMBOSIS [None]
  - DEPRESSION [None]
  - HEADACHE [None]
  - OEDEMA PERIPHERAL [None]
  - PAIN IN EXTREMITY [None]
  - PULMONARY EMBOLISM [None]
  - THROMBOSIS [None]
